FAERS Safety Report 9436649 (Version 2)
Quarter: 2013Q3

REPORT INFORMATION
  Report Type: Spontaneous
  Country: US (occurrence: US)
  Receive Date: 20130802
  Receipt Date: 20130909
  Transmission Date: 20140515
  Serious: Yes (Other)
  Sender: FDA-Public Use
  Company Number: US-TEVA-422571USA

PATIENT
  Age: 35 Year
  Sex: Female
  Weight: 100.33 kg

DRUGS (3)
  1. PARAGARD 380A [Suspect]
     Indication: CONTRACEPTION
     Route: 015
     Dates: start: 20130627, end: 20130725
  2. PLAQUENIL [Concomitant]
     Dosage: 200 MILLIGRAM DAILY;
     Route: 048
  3. SYNTHROID [Concomitant]
     Indication: HYPOTHYROIDISM
     Route: 048

REACTIONS (2)
  - Device dislocation [Not Recovered/Not Resolved]
  - Feeling abnormal [Recovered/Resolved]
